FAERS Safety Report 10150384 (Version 1)
Quarter: 2014Q2

REPORT INFORMATION
  Report Type: Spontaneous
  Country: US (occurrence: US)
  Receive Date: 20140502
  Receipt Date: 20140502
  Transmission Date: 20141212
  Serious: Yes (Other)
  Sender: FDA-Public Use
  Company Number: US-ASTRAZENECA-2014SE28528

PATIENT
  Age: 717 Month
  Sex: Female
  Weight: 86.2 kg

DRUGS (10)
  1. LYRICA [Suspect]
     Indication: FIBROMYALGIA
     Route: 048
     Dates: start: 201201, end: 201201
  2. LYRICA [Suspect]
     Indication: FIBROMYALGIA
     Route: 048
     Dates: start: 201201, end: 201201
  3. LYRICA [Suspect]
     Indication: FIBROMYALGIA
     Route: 048
     Dates: start: 2013
  4. LYRICA [Suspect]
     Indication: FIBROMYALGIA
     Route: 048
  5. LYRICA [Suspect]
     Indication: FIBROMYALGIA
     Route: 048
  6. XANAX [Concomitant]
     Indication: ANXIETY
  7. NEXIUM [Suspect]
     Indication: GASTROOESOPHAGEAL REFLUX DISEASE
     Route: 048
  8. TOPROL XL [Suspect]
     Indication: BLOOD PRESSURE ABNORMAL
     Route: 048
  9. CRESTOR [Suspect]
     Indication: BLOOD CHOLESTEROL INCREASED
     Route: 048
  10. LYRICA [Suspect]
     Indication: FIBROMYALGIA
     Route: 048
     Dates: start: 2011

REACTIONS (13)
  - Pain [Recovered/Resolved]
  - Influenza like illness [Recovered/Resolved]
  - Blood cholesterol increased [Unknown]
  - Weight increased [Unknown]
  - Cough [Unknown]
  - Skin sensitisation [Unknown]
  - Tenderness [Unknown]
  - Headache [Unknown]
  - Dizziness [Recovered/Resolved]
  - Drug intolerance [Unknown]
  - Drug ineffective [Unknown]
  - Intentional product misuse [Unknown]
  - Drug dose omission [Unknown]
